FAERS Safety Report 11778023 (Version 2)
Quarter: 2015Q4

REPORT INFORMATION
  Report Type: Spontaneous
  Country: US (occurrence: US)
  Receive Date: 20151125
  Receipt Date: 20151204
  Transmission Date: 20160304
  Serious: No
  Sender: FDA-Public Use
  Company Number: US-WATSON-2015-00449

PATIENT
  Age: 69 Year
  Sex: Female

DRUGS (2)
  1. RANITIDINE [Concomitant]
     Active Substance: RANITIDINE\RANITIDINE HYDROCHLORIDE
     Indication: REFLUX GASTRITIS
     Dosage: 150 MG, DAILY
     Route: 048
  2. LORAZEPAM (WATSON LABORATORIES) [Suspect]
     Active Substance: LORAZEPAM
     Indication: ANXIETY
     Dosage: UNK, UNKNOWN
     Route: 048

REACTIONS (1)
  - Glossodynia [Recovered/Resolved]

NARRATIVE: CASE EVENT DATE: 20150110
